FAERS Safety Report 5614048-2 (Version None)
Quarter: 2008Q1

REPORT INFORMATION
  Report Type: 
  Country: None (occurrence: None)
  Receive Date: 20080205
  Receipt Date: 20080123
  Transmission Date: 20080703
  Serious: Yes (Hospitalization)
  Sender: FDA-Public Use
  Company Number: DE-ROCHE-542984

PATIENT
  Age: 8 Year
  Sex: Male

DRUGS (2)
  1. TAMIFLU [Suspect]
     Indication: INFLUENZA
     Route: 065
     Dates: start: 20080120
  2. IBUPROFEN [Suspect]
     Indication: ABDOMINAL PAIN
     Route: 065
     Dates: start: 20080122

REACTIONS (7)
  - ABDOMINAL PAIN UPPER [None]
  - DIARRHOEA [None]
  - EPISTAXIS [None]
  - HEADACHE [None]
  - HYPOTHERMIA [None]
  - NAUSEA [None]
  - VOMITING [None]
